FAERS Safety Report 7674309-2 (Version None)
Quarter: 2011Q3

REPORT INFORMATION
  Report Type: 
  Country: None (occurrence: None)
  Receive Date: 20110810
  Receipt Date: 20110524
  Transmission Date: 20111222
  Serious: No
  Sender: FDA-Public Use
  Company Number: US-BAUSCH-2011BL003471

PATIENT
  Age: 77 Year
  Sex: Male

DRUGS (1)
  1. CROMOLYN SODIUM [Suspect]
     Indication: SEASONAL ALLERGY
     Route: 045
     Dates: start: 20110523, end: 20110523

REACTIONS (2)
  - EYE IRRITATION [None]
  - NASAL OEDEMA [None]
